FAERS Safety Report 6426164-6 (Version None)
Quarter: 2009Q4

REPORT INFORMATION
  Report Type: 
  Country: None (occurrence: None)
  Receive Date: 20091104
  Receipt Date: 20091026
  Transmission Date: 20100525
  Serious: Yes (Other)
  Sender: FDA-Public Use
  Company Number: US-JNJFOC-20090903246

PATIENT
  Sex: Female
  Weight: 96.16 kg

DRUGS (1)
  1. REMICADE [Suspect]
     Indication: CROHN'S DISEASE
     Route: 042
     Dates: start: 20060901, end: 20090201

REACTIONS (2)
  - GASTRIC CANCER [None]
  - MESOTHELIOMA [None]
